FAERS Safety Report 5266383-8 (Version None)
Quarter: 2007Q1

REPORT INFORMATION
  Report Type: 
  Country: None (occurrence: None)
  Receive Date: 20070315
  Receipt Date: 20070305
  Transmission Date: 20070707
  Serious: Yes (Life-Threatening)
  Sender: FDA-Public Use
  Company Number: FR-BAXTER-2007BH002621

PATIENT
  Age: 53 Year
  Sex: Female

DRUGS (9)
  1. SUPRANE [Suspect]
     Indication: SURGERY
     Dosage: DOSE UNIT:UNKNOWN
     Route: 055
     Dates: start: 20070110, end: 20070110
  2. SUPRANE [Suspect]
     Dosage: DOSE UNIT:UNKNOWN
     Route: 055
     Dates: start: 20070207, end: 20070207
  3. CEFAZOLIN [Suspect]
     Indication: ANAESTHESIA
     Dosage: DOSE UNIT:UNKNOWN
     Route: 042
     Dates: start: 20070110, end: 20070110
  4. CEFAZOLIN [Suspect]
     Route: 042
     Dates: start: 20070207, end: 20070207
  5. PROPACETAMOL [Suspect]
     Indication: ANAESTHESIA
     Dosage: DOSE UNIT:UNKNOWN
     Route: 042
     Dates: start: 20070110, end: 20070110
  6. PROPACETAMOL [Suspect]
     Route: 042
     Dates: start: 20070207, end: 20070207
  7. TERCIAN [Concomitant]
  8. HALDOL [Concomitant]
  9. DEPAMIDE [Concomitant]

REACTIONS (4)
  - ERYTHEMA [None]
  - HYPOTENSION [None]
  - HYPOXIA [None]
  - TACHYCARDIA [None]
